FAERS Safety Report 15819749 (Version 1)
Quarter: 2019Q1

REPORT INFORMATION
  Report Type: Spontaneous
  Country: PT (occurrence: PT)
  Receive Date: 20190114
  Receipt Date: 20190114
  Transmission Date: 20190417
  Serious: Yes (Other)
  Sender: FDA-Public Use
  Company Number: PT-BAUSCH-BL-2019-000503

PATIENT
  Age: 72 Year

DRUGS (3)
  1. TRAVOPROST. [Suspect]
     Active Substance: TRAVOPROST
     Indication: GLAUCOMA
     Dosage: 0.004 PERCENT, QD
     Route: 061
  2. BRIMONIDINE [Suspect]
     Active Substance: BRIMONIDINE TARTRATE
     Indication: GLAUCOMA
     Dosage: 2 PERCENT, BID
     Route: 061
  3. DORZOLAMIDE PLUS TIMOLOL [Suspect]
     Active Substance: DORZOLAMIDE\TIMOLOL
     Indication: GLAUCOMA
     Dosage: DOSE: 2 (UNITS UNSPECIFIED), DORZOLAMIDE 2 PERCENT/TIMOLOL 0.5 PERCENT, BID
     Route: 061

REACTIONS (2)
  - Glaucoma [Unknown]
  - Disease progression [Unknown]
